FAERS Safety Report 16683663 (Version 1)
Quarter: 2019Q3

REPORT INFORMATION
  Report Type: Spontaneous
  Country: US (occurrence: US)
  Receive Date: 20190808
  Receipt Date: 20190808
  Transmission Date: 20191004
  Serious: No
  Sender: FDA-Public Use
  Company Number: US-ALLERGAN-1844471US

PATIENT
  Sex: Male

DRUGS (3)
  1. ANDRODERM [Suspect]
     Active Substance: TESTOSTERONE
     Indication: HORMONE REPLACEMENT THERAPY
     Dosage: 1 DF, QHS
     Route: 061
     Dates: start: 201806
  2. ANDRODERM [Suspect]
     Active Substance: TESTOSTERONE
     Dosage: 1 DF, QHS
     Route: 061
  3. ANDRODERM [Suspect]
     Active Substance: TESTOSTERONE
     Dosage: 1 DF, QHS
     Route: 061
     Dates: start: 20180907, end: 20180908

REACTIONS (6)
  - Pruritus [Recovering/Resolving]
  - Application site pain [Recovered/Resolved]
  - Application site dryness [Not Recovered/Not Resolved]
  - Discomfort [Unknown]
  - Skin irritation [Not Recovered/Not Resolved]
  - Application site erythema [Unknown]
